FAERS Safety Report 8747196 (Version 3)
Quarter: 2012Q4

REPORT INFORMATION
  Report Type: 
  Country: GB (occurrence: GB)
  Receive Date: 20120827
  Receipt Date: 20121001
  Transmission Date: 20130627
  Serious: Yes (Death, Other)
  Sender: FDA-Public Use
  Company Number: GB-ABBOTT-12P-167-0972128-00

PATIENT
  Age: 2 Year
  Sex: Female

DRUGS (1)
  1. IBUPROFEN [Suspect]
     Indication: VIRAL INFECTION
     Route: 048

REACTIONS (4)
  - Sepsis [Fatal]
  - Pneumonia [Fatal]
  - Asphyxia [Fatal]
  - Dyspnoea [Fatal]
